FAERS Safety Report 4855840-1 (Version None)
Quarter: 2005Q4

REPORT INFORMATION
  Report Type: 
  Country: None (occurrence: None)
  Receive Date: 20051216
  Receipt Date: 20040903
  Transmission Date: 20060501
  Serious: Yes (Hospitalization, Other)
  Sender: FDA-Public Use
  Company Number: US-MERCK-0409USA00275

PATIENT
  Age: 71 Year
  Sex: Female
  Weight: 74 kg

DRUGS (12)
  1. VIOXX [Suspect]
     Indication: PAIN MANAGEMENT
     Route: 048
     Dates: start: 19990101, end: 20040825
  2. VIOXX [Suspect]
     Indication: NECK PAIN
     Route: 048
     Dates: start: 19990101, end: 20040825
  3. PLAVIX [Concomitant]
     Route: 065
  4. SYNTHROID [Concomitant]
     Route: 065
  5. ZETIA [Concomitant]
     Route: 048
  6. LOTREL [Concomitant]
     Route: 065
  7. ZANAFLEX [Concomitant]
     Route: 065
  8. SKELAXIN [Concomitant]
     Route: 065
  9. PHENERGAN (PROMETHAZINE HYDROCHLORIDE) [Concomitant]
     Route: 065
  10. PERCOCET [Concomitant]
     Route: 065
  11. ASPIRIN [Concomitant]
     Route: 065
  12. PREVACID [Concomitant]
     Route: 065

REACTIONS (7)
  - CATHETER SITE HAEMORRHAGE [None]
  - CEREBROVASCULAR ACCIDENT [None]
  - CORONARY ARTERY DISEASE [None]
  - FATIGUE [None]
  - FEAR [None]
  - MYOCARDIAL INFARCTION [None]
  - TRANSIENT ISCHAEMIC ATTACK [None]
